FAERS Safety Report 4674978-5 (Version None)
Quarter: 2005Q2

REPORT INFORMATION
  Report Type: 
  Country: None (occurrence: None)
  Receive Date: 20050525
  Receipt Date: 20050511
  Transmission Date: 20051028
  Serious: Yes (Hospitalization)
  Sender: FDA-Public Use
  Company Number: 2005BI003377

PATIENT
  Age: 48 Year
  Sex: Male

DRUGS (2)
  1. NATALIZUMAB [Suspect]
     Indication: MULTIPLE SCLEROSIS
     Dosage: QM;IV
     Route: 042
     Dates: start: 20041206, end: 20050202
  2. STEROIDS [Concomitant]

REACTIONS (2)
  - ANAPHYLACTIC REACTION [None]
  - INTESTINAL PERFORATION [None]
